FAERS Safety Report 10561209 (Version 3)
Quarter: 2014Q4

REPORT INFORMATION
  Report Type: Spontaneous
  Country: MX (occurrence: MX)
  Receive Date: 20141103
  Receipt Date: 20141104
  Transmission Date: 20150529
  Serious: Yes (Other)
  Sender: FDA-Public Use
  Company Number: MX-PFIZER INC-2014292093

PATIENT
  Age: 60 Year
  Sex: Male

DRUGS (2)
  1. NEUGERON /00052501/ [Suspect]
     Active Substance: CARBAMAZEPINE
     Dosage: 3 DF, 1X/DAY
     Dates: start: 1994
  2. EPAMIN [Suspect]
     Active Substance: PHENYTOIN SODIUM
     Indication: EPILEPSY
     Dosage: 3 DF, 1X/DAY
     Dates: start: 1994

REACTIONS (6)
  - Anxiety [Unknown]
  - Bone pain [Unknown]
  - Seizure [Unknown]
  - Back pain [Unknown]
  - Arthralgia [Unknown]
  - Bone decalcification [Unknown]
